FAERS Safety Report 18176111 (Version 3)
Quarter: 2020Q4

REPORT INFORMATION
  Report Type: Spontaneous
  Country: US (occurrence: US)
  Receive Date: 20200820
  Receipt Date: 20201005
  Transmission Date: 20210113
  Serious: Yes (Other)
  Sender: FDA-Public Use
  Company Number: US-ROCHE-2659776

PATIENT
  Age: 53 Year
  Sex: Male
  Weight: 118 kg

DRUGS (5)
  1. ACTIVASE [Suspect]
     Active Substance: ALTEPLASE
     Indication: CEREBROVASCULAR ACCIDENT
     Dosage: BOLUS
     Route: 065
     Dates: start: 20200811
  2. SOLU-MEDROL [Concomitant]
     Active Substance: METHYLPREDNISOLONE SODIUM SUCCINATE
  3. ACTIVASE [Suspect]
     Active Substance: ALTEPLASE
     Dosage: INFUSION
     Route: 065
     Dates: start: 20200811
  4. ACTIVASE [Suspect]
     Active Substance: ALTEPLASE
     Route: 065
  5. NORMAL SALINE [Concomitant]
     Active Substance: SODIUM CHLORIDE

REACTIONS (7)
  - SARS-CoV-2 test positive [Unknown]
  - Off label use [Unknown]
  - Intentional product use issue [Unknown]
  - Angioedema [Recovered/Resolved]
  - Product quality issue [Unknown]
  - Anaphylactic reaction [Recovered/Resolved]
  - Hypotension [Recovered/Resolved]

NARRATIVE: CASE EVENT DATE: 20200811
